FAERS Safety Report 7602529-1 (Version None)
Quarter: 2011Q3

REPORT INFORMATION
  Report Type: 
  Country: None (occurrence: None)
  Receive Date: 20110701
  Receipt Date: 20110622
  Transmission Date: 20111222
  Serious: Yes (Hospitalization, Other)
  Sender: FDA-Public Use
  Company Number: US-2011-10429

PATIENT
  Age: 21 Year
  Sex: Female

DRUGS (4)
  1. MYCOPHENOLATE MOFETIL [Concomitant]
  2. CYCLOSPORINE [Concomitant]
  3. FLUDARA [Suspect]
     Indication: STEM CELL TRANSPLANT
     Dosage: 30 MG/M2, DAILY DOSE
  4. BUSULFEX [Suspect]
     Indication: STEM CELL TRANSPLANT
     Dosage: 3.2 MG/KG, DAILY DOSE, INTRAVENOUS
     Route: 042

REACTIONS (6)
  - OCCULT BLOOD POSITIVE [None]
  - STEVENS-JOHNSON SYNDROME [None]
  - MYCOPLASMA INFECTION [None]
  - HAEMATURIA [None]
  - DEHYDRATION [None]
  - CONJUNCTIVITIS [None]
